FAERS Safety Report 4369118-6 (Version None)
Quarter: 2004Q2

REPORT INFORMATION
  Report Type: 
  Country: None (occurrence: None)
  Receive Date: 20040601
  Receipt Date: 20040601
  Transmission Date: 20050107
  Serious: Yes (Life-Threatening, Disabling)
  Sender: FDA-Public Use
  Company Number: None

PATIENT
  Age: 62 Year
  Sex: Male
  Weight: 68.0396 kg

DRUGS (2)
  1. KENALOG [Suspect]
     Indication: SCROTAL DISORDER
     Dosage: 7 CC ONCE BUTTOCK
     Dates: start: 20020325
  2. KENALOG [Suspect]
     Indication: VARICOSE VEIN RUPTURED
     Dosage: 7 CC ONCE BUTTOCK
     Dates: start: 20020325

REACTIONS (2)
  - ANGIOPATHY [None]
  - CARDIAC FAILURE [None]
